FAERS Safety Report 8330787-7 (Version None)
Quarter: 2012Q2

REPORT INFORMATION
  Report Type: 
  Country: None (occurrence: None)
  Receive Date: 20120502
  Receipt Date: 20120424
  Transmission Date: 20120825
  Serious: Yes (Hospitalization)
  Sender: FDA-Public Use
  Company Number: US-ABBOTT-12P-163-0924746-00

PATIENT
  Sex: Female
  Weight: 81.72 kg

DRUGS (20)
  1. CELEXA [Concomitant]
     Indication: PRODUCT USED FOR UNKNOWN INDICATION
     Dosage: 40 MG DAILY
  2. ENTOCORT EC [Concomitant]
     Indication: PRODUCT USED FOR UNKNOWN INDICATION
     Dosage: 2 TABLETS IN AM 1 AT BEDTIME
  3. AMITRIPTYLINE HCL [Concomitant]
     Indication: GASTRIC DISORDER
  4. IRON [Concomitant]
     Indication: PRODUCT USED FOR UNKNOWN INDICATION
  5. CIPROFLOXACIN HCL [Concomitant]
     Indication: COLITIS ULCERATIVE
  6. MIRAPEX [Concomitant]
     Indication: RESTLESS LEGS SYNDROME
     Dosage: AT BEDTIME
  7. AMITRIPTYLINE HCL [Concomitant]
     Indication: INSOMNIA
     Dosage: AT BEDTIME
  8. LEVOXYL [Concomitant]
     Indication: PRODUCT USED FOR UNKNOWN INDICATION
  9. VITAMIN D [Concomitant]
     Indication: PRODUCT USED FOR UNKNOWN INDICATION
  10. HUMIRA [Suspect]
     Dates: start: 20120407, end: 20120407
  11. PREDNISONE [Concomitant]
     Indication: PRODUCT USED FOR UNKNOWN INDICATION
     Dosage: INTERMITTENTLY
  12. BONIVA [Concomitant]
     Indication: PRODUCT USED FOR UNKNOWN INDICATION
  13. VIT C [Concomitant]
     Indication: PRODUCT USED FOR UNKNOWN INDICATION
  14. FLAXSEED OIL [Concomitant]
     Indication: PRODUCT USED FOR UNKNOWN INDICATION
  15. MULTI-VITAMIN [Concomitant]
     Indication: PRODUCT USED FOR UNKNOWN INDICATION
  16. FLAGYL [Concomitant]
     Indication: PRODUCT USED FOR UNKNOWN INDICATION
  17. MORPHINE SULFATE [Concomitant]
     Indication: PRODUCT USED FOR UNKNOWN INDICATION
  18. HUMIRA [Suspect]
     Indication: CROHN'S DISEASE
     Dates: start: 20120322, end: 20120322
  19. HUMIRA [Suspect]
  20. CALCIUM [Concomitant]
     Indication: PRODUCT USED FOR UNKNOWN INDICATION

REACTIONS (3)
  - PULMONARY EMBOLISM [None]
  - THROMBOSIS [None]
  - POUCHITIS [None]
